FAERS Safety Report 14670149 (Version 2)
Quarter: 2018Q2

REPORT INFORMATION
  Report Type: Report from Study
  Country: US (occurrence: US)
  Receive Date: 20180322
  Receipt Date: 20180426
  Transmission Date: 20180711
  Serious: Yes (Other)
  Sender: FDA-Public Use
  Company Number: US-JNJFOC-20171029544

PATIENT
  Age: 59 Year
  Sex: Female

DRUGS (12)
  1. LISINOPRIL. [Concomitant]
     Active Substance: LISINOPRIL
  2. IMBRUVICA [Suspect]
     Active Substance: IBRUTINIB
     Indication: CHRONIC LYMPHOCYTIC LEUKAEMIA
     Route: 048
     Dates: start: 20171016
  3. MORPHINE SULFATE. [Concomitant]
     Active Substance: MORPHINE SULFATE
  4. OXYCODONE [Concomitant]
     Active Substance: OXYCODONE
  5. CYCLOBENZAPRINE. [Concomitant]
     Active Substance: CYCLOBENZAPRINE
  6. PROTONIX [Concomitant]
     Active Substance: PANTOPRAZOLE SODIUM
  7. IMBRUVICA [Suspect]
     Active Substance: IBRUTINIB
     Indication: CHRONIC LYMPHOCYTIC LEUKAEMIA
     Route: 048
     Dates: start: 20171013, end: 2017
  8. IMBRUVICA [Suspect]
     Active Substance: IBRUTINIB
     Indication: CHRONIC LYMPHOCYTIC LEUKAEMIA
     Route: 048
     Dates: start: 20171110
  9. ACYCLOVIR. [Concomitant]
     Active Substance: ACYCLOVIR
  10. LYRICA [Concomitant]
     Active Substance: PREGABALIN
  11. ZYRTEC [Concomitant]
     Active Substance: CETIRIZINE HYDROCHLORIDE
  12. RITUXAN [Concomitant]
     Active Substance: RITUXIMAB

REACTIONS (14)
  - Myalgia [Not Recovered/Not Resolved]
  - Platelet count decreased [Unknown]
  - Ligament sprain [Not Recovered/Not Resolved]
  - White blood cell count decreased [Unknown]
  - Sinusitis [Not Recovered/Not Resolved]
  - Adverse drug reaction [Unknown]
  - Glossodynia [Not Recovered/Not Resolved]
  - Cystitis [Recovered/Resolved]
  - Cervical vertebral fracture [Unknown]
  - Fluid retention [Unknown]
  - Arthralgia [Unknown]
  - Headache [Unknown]
  - Influenza [Unknown]
  - Dizziness [Unknown]

NARRATIVE: CASE EVENT DATE: 2017
